FAERS Safety Report 13983200 (Version 1)
Quarter: 2017Q3

REPORT INFORMATION
  Report Type: Spontaneous
  Country: US (occurrence: US)
  Receive Date: 20170918
  Receipt Date: 20170918
  Transmission Date: 20171128
  Serious: Yes (Life-Threatening, Disabling, Other)
  Sender: FDA-Public Use
  Company Number: None

PATIENT
  Age: 57 Year
  Sex: Female
  Weight: 87.75 kg

DRUGS (5)
  1. PROBIOTICS [Concomitant]
     Active Substance: PROBIOTICS NOS
  2. CLINDAMYCIN. [Suspect]
     Active Substance: CLINDAMYCIN
     Indication: GINGIVITIS
     Dosage: ?          QUANTITY:1 TABLET(S);?EVERY 4 HOURS ORAL
     Route: 048
     Dates: start: 20170706, end: 20170715
  3. CLINDAMYCIN. [Suspect]
     Active Substance: CLINDAMYCIN
     Indication: TOOTH EXTRACTION
     Dosage: ?          QUANTITY:1 TABLET(S);?EVERY 4 HOURS ORAL
     Route: 048
     Dates: start: 20170706, end: 20170715
  4. CLINDAMYCIN. [Suspect]
     Active Substance: CLINDAMYCIN
     Indication: POST PROCEDURAL INFECTION
     Dosage: ?          QUANTITY:1 TABLET(S);?EVERY 4 HOURS ORAL
     Route: 048
     Dates: start: 20170706, end: 20170715
  5. L-GLUTEMINE [Concomitant]

REACTIONS (3)
  - Diarrhoea [None]
  - Pyrexia [None]
  - Clostridium test positive [None]

NARRATIVE: CASE EVENT DATE: 20170727
